FAERS Safety Report 13041639 (Version 1)
Quarter: 2016Q4

REPORT INFORMATION
  Report Type: Spontaneous
  Country: US (occurrence: US)
  Receive Date: 20161219
  Receipt Date: 20161219
  Transmission Date: 20170207
  Serious: No
  Sender: FDA-Public Use
  Company Number: US-ROCHE-1363038

PATIENT
  Sex: Female

DRUGS (6)
  1. OXYCODONE [Concomitant]
     Active Substance: OXYCODONE
     Dosage: 1 EVERY 8 HRS AS NEEDED, USUALLY TAKE TWICE A DAY
     Route: 048
  2. CELEXA [Concomitant]
     Active Substance: CITALOPRAM HYDROBROMIDE
     Route: 048
  3. IBUPROFEN. [Concomitant]
     Active Substance: IBUPROFEN
     Route: 048
  4. MORPHINE ER [Concomitant]
     Active Substance: MORPHINE
     Dosage: 1 IN MORNING, 2 AT BEDTIME
     Route: 048
  5. BUSPIRONE [Concomitant]
     Active Substance: BUSPIRONE HYDROCHLORIDE
     Route: 048
  6. ZELBORAF [Suspect]
     Active Substance: VEMURAFENIB
     Indication: MALIGNANT MELANOMA
     Dosage: 720 MG TWICE A DAY
     Route: 048
     Dates: start: 201308

REACTIONS (4)
  - Dry skin [Not Recovered/Not Resolved]
  - Dyspnoea [Unknown]
  - Hypersensitivity [Unknown]
  - Skin papilloma [Not Recovered/Not Resolved]
